FAERS Safety Report 9119916 (Version 2)
Quarter: 2013Q3

REPORT INFORMATION
  Report Type: Report from Study
  Country: US (occurrence: US)
  Receive Date: 20130226
  Receipt Date: 20130826
  Transmission Date: 20140515
  Serious: Yes (Hospitalization, Other)
  Sender: FDA-Public Use
  Company Number: US-ELI_LILLY_AND_COMPANY-US201302006120

PATIENT
  Sex: Female

DRUGS (17)
  1. TERIPARATIDE [Suspect]
     Indication: OSTEOPOROSIS
     Dosage: 20 UG QD
     Dates: start: 201202
  2. TERIPARATIDE [Suspect]
     Dosage: 20 UG, QD
     Dates: start: 20120821
  3. COUMADIN [Concomitant]
  4. PREDNISONE [Concomitant]
     Dosage: 8 MG, QD
  5. PLAQUENIL [Concomitant]
     Dosage: 200 MG, BID
  6. FLORASTOR [Concomitant]
     Dosage: UNK, QD
  7. SULFASALAZINE [Concomitant]
     Dosage: 500 MG, QD
  8. DOXICYCLIN [Concomitant]
     Dosage: 100 MG, BID
  9. VITAMIN B12 [Concomitant]
     Dosage: 50000 MG, WEEKLY (1/W)
  10. METOCLOPRAM GI [Concomitant]
     Dosage: 5 MG, BID
  11. METOPROLOL [Concomitant]
     Dosage: 50 MG, BID
  12. ESCITALOPRAM [Concomitant]
     Dosage: 10 MG, QD
  13. HYDROXYCHLOROQUINE [Concomitant]
     Dosage: 200 MG, BID
  14. BUMETANIDE [Concomitant]
     Dosage: 2 MG, BID
  15. LEVOTHYROXINE [Concomitant]
     Dosage: 50 MG, QD
  16. GLIMEPIDE [Concomitant]
     Dosage: 1 MG, QD
  17. DILTIAZEM [Concomitant]
     Dosage: 180 MG, QD

REACTIONS (8)
  - Diabetic foot [Recovering/Resolving]
  - Chronic obstructive pulmonary disease [Recovering/Resolving]
  - Fall [Unknown]
  - Hip fracture [Unknown]
  - Upper limb fracture [Unknown]
  - Pneumonia [Recovering/Resolving]
  - Movement disorder [Recovering/Resolving]
  - Discomfort [Unknown]
